FAERS Safety Report 6080425-1 (Version None)
Quarter: 2009Q1

REPORT INFORMATION
  Report Type: 
  Country: None (occurrence: None)
  Receive Date: 20090217
  Receipt Date: 20090206
  Transmission Date: 20090719
  Serious: Yes (Hospitalization)
  Sender: FDA-Public Use
  Company Number: PHHY2008DE28194

PATIENT
  Sex: Female

DRUGS (5)
  1. FEMARA [Suspect]
     Indication: BREAST CANCER
     Dosage: 2.5 MG, QD
     Route: 048
     Dates: start: 20050802, end: 20071213
  2. INSULIN [Concomitant]
     Dosage: 34-18-18
     Route: 058
  3. TORSEMIDE [Concomitant]
     Dosage: 0.5 TAB DAILY
     Route: 048
  4. PENTALONG [Concomitant]
     Dosage: 1-0-1
  5. BISOPROLOL [Concomitant]
     Dosage: DAILY
     Route: 048

REACTIONS (3)
  - FATIGUE [None]
  - GENERAL PHYSICAL HEALTH DETERIORATION [None]
  - THROMBOCYTOPENIA [None]
